FAERS Safety Report 6710123-X (Version None)
Quarter: 2010Q2

REPORT INFORMATION
  Report Type: 
  Country: None (occurrence: None)
  Receive Date: 20100504
  Receipt Date: 20100429
  Transmission Date: 20101027
  Serious: Yes (Death)
  Sender: FDA-Public Use
  Company Number: AT-ROCHE-568229

PATIENT
  Sex: Male

DRUGS (2)
  1. CAPECITABINE [Suspect]
     Indication: COLON CANCER
     Dosage: DOSE REPORTED AS: 2.500. 1250 MG/M2 TWICE DAILY FOR 14 DAYS EVERY 3 WEEKS.
     Route: 048
     Dates: start: 20080107
  2. BEVACIZUMAB [Suspect]
     Indication: COLON CANCER
     Dosage: DOSE REPORTED AS: 547.5 MG; DOSAGE FORM: INFUSION.
     Route: 042
     Dates: start: 20080107

REACTIONS (1)
  - MULTI-ORGAN FAILURE [None]
